FAERS Safety Report 14717854 (Version 2)
Quarter: 2019Q2

REPORT INFORMATION
  Report Type: Spontaneous
  Country: US (occurrence: US)
  Receive Date: 20180404
  Receipt Date: 20190617
  Transmission Date: 20190711
  Serious: No
  Sender: FDA-Public Use
  Company Number: US-SA-2018SA033225

PATIENT
  Sex: Female

DRUGS (3)
  1. DUPIXENT [Suspect]
     Active Substance: DUPILUMAB
     Indication: DERMATITIS ATOPIC
     Dosage: UNK UNK,QOW
     Route: 051
  2. DUPIXENT [Suspect]
     Active Substance: DUPILUMAB
     Dosage: 600 MG, 1X
  3. DUPIXENT [Suspect]
     Active Substance: DUPILUMAB
     Dosage: UNK UNK,QW
     Route: 051

REACTIONS (3)
  - Off label use [Unknown]
  - Product use issue [Unknown]
  - Injection site reaction [Unknown]
